FAERS Safety Report 7073091-X (Version None)
Quarter: 2010Q4

REPORT INFORMATION
  Report Type: 
  Country: None (occurrence: None)
  Receive Date: 20101029
  Receipt Date: 20100511
  Transmission Date: 20110411
  Serious: No
  Sender: FDA-Public Use
  Company Number: A0856350A

PATIENT
  Age: 69 Year
  Sex: Female

DRUGS (12)
  1. ADVAIR DISKUS 100/50 [Suspect]
     Indication: ASTHMA
     Dosage: 1PUFF TWICE PER DAY
     Route: 055
     Dates: start: 20100304
  2. LEVETIRACETAM [Concomitant]
  3. METHOCARBAMOL [Concomitant]
  4. FEXOFENADINE HCL [Concomitant]
  5. OXYBUTYNIN [Concomitant]
  6. OMEPRAZOLE [Concomitant]
  7. ACTONEL [Concomitant]
  8. COMBIVENT [Concomitant]
  9. CYCLOBENZAPRINE [Concomitant]
  10. NASONEX [Concomitant]
  11. SIMVASTATIN [Concomitant]
  12. DIVALPROEX SODIUM [Concomitant]

REACTIONS (2)
  - BREATH ODOUR [None]
  - OROPHARYNGEAL BLISTERING [None]
